FAERS Safety Report 4307107-8 (Version None)
Quarter: 2004Q1

REPORT INFORMATION
  Report Type: 
  Country: None (occurrence: None)
  Receive Date: 20040225
  Receipt Date: 20040206
  Transmission Date: 20041129
  Serious: Yes (Other)
  Sender: FDA-Public Use
  Company Number: USA030126984

PATIENT
  Age: 84 Year
  Sex: Female
  Weight: 61 kg

DRUGS (4)
  1. HUMULIN N [Suspect]
     Indication: DIABETES MELLITUS
     Dosage: 5 U/DAY
     Dates: start: 19990101, end: 20040201
  2. AMARYL [Concomitant]
  3. ACTOS [Concomitant]
  4. PREDNISONE [Concomitant]

REACTIONS (12)
  - BLOOD GLUCOSE INCREASED [None]
  - DEPRESSED MOOD [None]
  - DIARRHOEA [None]
  - FEELING ABNORMAL [None]
  - HEADACHE [None]
  - HOARSENESS [None]
  - INJECTION SITE HAEMORRHAGE [None]
  - MULTIPLE MYELOMA [None]
  - NERVOUSNESS [None]
  - PHARMACEUTICAL PRODUCT COMPLAINT [None]
  - ROSACEA [None]
  - THIRST [None]
